FAERS Safety Report 5654778-X (Version None)
Quarter: 2008Q1

REPORT INFORMATION
  Report Type: 
  Country: None (occurrence: None)
  Receive Date: 20080307
  Receipt Date: 20070726
  Transmission Date: 20080703
  Serious: No
  Sender: FDA-Public Use
  Company Number: A0662489A

PATIENT
  Age: 78 Year
  Sex: Female

DRUGS (10)
  1. REQUIP [Suspect]
     Indication: RESTLESS LEGS SYNDROME
     Dosage: .25MG PER DAY
     Route: 048
     Dates: start: 20070627, end: 20070709
  2. INSULIN [Concomitant]
  3. ASPIRIN [Concomitant]
  4. ACCUPRIL [Concomitant]
  5. AVANDIA [Concomitant]
  6. FUROSEMIDE [Concomitant]
  7. POTASSIUM CHLORIDE [Concomitant]
  8. LIPITOR [Concomitant]
  9. ALPRAZOLAM [Concomitant]
  10. PRILOSEC [Concomitant]

REACTIONS (7)
  - DISCOMFORT [None]
  - EMOTIONAL DISTRESS [None]
  - MALAISE [None]
  - NAUSEA [None]
  - SLEEP DISORDER [None]
  - STOMACH DISCOMFORT [None]
  - VOMITING [None]
